FAERS Safety Report 8054212-9 (Version None)
Quarter: 2012Q1

REPORT INFORMATION
  Report Type: 
  Country: None (occurrence: None)
  Receive Date: 20120118
  Receipt Date: 20120111
  Transmission Date: 20120608
  Serious: Yes (Other)
  Sender: FDA-Public Use
  Company Number: US-ROCHE-793834

PATIENT
  Sex: Male
  Weight: 176.15 kg

DRUGS (1)
  1. ACCUTANE [Suspect]
     Indication: ACNE
     Dates: start: 19860701, end: 19970101

REACTIONS (6)
  - ANAL ABSCESS [None]
  - INFLAMMATORY BOWEL DISEASE [None]
  - FISTULA [None]
  - CYST [None]
  - CROHN'S DISEASE [None]
  - HYPERTENSION [None]
